FAERS Safety Report 4977674-X (Version None)
Quarter: 2006Q2

REPORT INFORMATION
  Report Type: 
  Country: None (occurrence: None)
  Receive Date: 20060420
  Receipt Date: 20050609
  Transmission Date: 20061013
  Serious: No
  Sender: FDA-Public Use
  Company Number: US-GLAXOSMITHKLINE-A0562006A

PATIENT
  Age: 15 Year
  Sex: Male

DRUGS (7)
  1. ESKALITH [Suspect]
     Indication: BIPOLAR DISORDER
     Dosage: 450MG TWICE PER DAY
     Route: 048
     Dates: start: 20040101
  2. LAMICTAL [Suspect]
     Indication: BIPOLAR DISORDER
     Dosage: 100MG AT NIGHT
     Route: 048
     Dates: start: 20041201
  3. ADDERALL 10 [Suspect]
     Indication: ATTENTION DEFICIT/HYPERACTIVITY DISORDER
     Dosage: 30MG IN THE MORNING
     Route: 048
     Dates: start: 20030101
  4. SINGULAIR [Concomitant]
  5. COLACE [Concomitant]
  6. MULTIVITAMIN [Concomitant]
  7. CALCIUM GLUCONATE [Concomitant]

REACTIONS (3)
  - GINGIVAL BLEEDING [None]
  - GINGIVAL RECESSION [None]
  - ORAL PAIN [None]
